FAERS Safety Report 6257195-7 (Version None)
Quarter: 2009Q3

REPORT INFORMATION
  Report Type: 
  Country: None (occurrence: None)
  Receive Date: 20090706
  Receipt Date: 20090623
  Transmission Date: 20100115
  Serious: Yes (Hospitalization)
  Sender: FDA-Public Use
  Company Number: DE-ELI_LILLY_AND_COMPANY-DE200906005425

PATIENT
  Age: 73 Year
  Sex: Female
  Weight: 52.7 kg

DRUGS (10)
  1. ZYPREXA [Suspect]
     Indication: MAJOR DEPRESSION
     Dosage: 2.5 MG, DAILY (1/D)
     Route: 048
     Dates: start: 20090127, end: 20090130
  2. SERTRALINE [Concomitant]
     Dosage: 100 MG, DAILY (1/D)
     Route: 048
     Dates: start: 20081229
  3. DOMPERIDON/00498201/ [Concomitant]
     Dosage: 20 MG, DAILY (1/D)
     Route: 048
     Dates: start: 20070101, end: 20090215
  4. ZOPLICONE [Concomitant]
     Dosage: 7.5 MG, DAILY (1/D)
     Route: 048
     Dates: start: 20081223
  5. PARIET [Concomitant]
     Dosage: 20 MG, DAILY (1/D)
     Route: 048
  6. OXAZEPAM [Concomitant]
     Dosage: 40 MG, DAILY (1/D)
     Route: 048
     Dates: start: 20090107
  7. MIRTAZAPINE [Concomitant]
     Dosage: 60 MG, DAILY (1/D)
     Route: 048
     Dates: start: 20071001, end: 20081231
  8. MIRTAZAPINE [Concomitant]
     Dosage: 7.5 MG, UNK
     Route: 048
     Dates: start: 20090213, end: 20090303
  9. QUETIAPINE FUMARATE [Concomitant]
     Dosage: 200 MG, DAILY (1/D)
     Route: 048
     Dates: start: 20081223
  10. LYRICA [Concomitant]
     Dosage: 200 MG, DAILY (1/D)
     Route: 048
     Dates: start: 20090210, end: 20090303

REACTIONS (4)
  - LEUKOPENIA [None]
  - OFF LABEL USE [None]
  - THROMBOCYTOPENIA [None]
  - TRANSAMINASES INCREASED [None]
